FAERS Safety Report 17457527 (Version 1)
Quarter: 2020Q1

REPORT INFORMATION
  Report Type: Spontaneous
  Country: US (occurrence: US)
  Receive Date: 20200225
  Receipt Date: 20200225
  Transmission Date: 20200409
  Serious: Yes (Death, Hospitalization, Other)
  Sender: FDA-Public Use
  Company Number: US-VISTAPHARM, INC.-VER202002-000396

PATIENT
  Age: 54 Year
  Sex: Male

DRUGS (2)
  1. HYDROCODONE AND ACETAMINOPHEN [Suspect]
     Active Substance: ACETAMINOPHEN\HYDROCODONE
     Indication: PRODUCT USED FOR UNKNOWN INDICATION
     Dosage: UNKNOWN
  2. METHYLENE BLUE. [Concomitant]
     Active Substance: METHYLENE BLUE
     Indication: METHAEMOGLOBINAEMIA
     Dosage: 2 MG/KG

REACTIONS (6)
  - Coagulopathy [Unknown]
  - Toxicity to various agents [Fatal]
  - Methaemoglobinaemia [Unknown]
  - Mental status changes [Unknown]
  - Hypotension [Unknown]
  - Hyperlactacidaemia [Unknown]
